FAERS Safety Report 10203019 (Version 2)
Quarter: 2014Q2

REPORT INFORMATION
  Report Type: Report from Study
  Country: US (occurrence: US)
  Receive Date: 20140528
  Receipt Date: 20140623
  Transmission Date: 20141212
  Serious: Yes (Hospitalization, Other)
  Sender: FDA-Public Use
  Company Number: US-BRISTOL-MYERS SQUIBB COMPANY-20790648

PATIENT
  Age: 71 Year
  Sex: Female
  Weight: 82.8 kg

DRUGS (9)
  1. IPILIMUMAB [Suspect]
     Indication: LYMPHOMA
     Dosage: IND:3MG/KG OVER 90 MINS Q3 WKS ON WKS 1,4,7,10?MAINT:3MG/KG OVER 90 MINS Q12 WKS ON WKS 22,34,46,58
     Route: 042
     Dates: start: 20140401, end: 20140422
  2. RITUXIMAB [Suspect]
     Indication: LYMPHOMA
     Dosage: INDUCTION:375 MG/M2 IV ON WKS 1,2,3,4?MAINTENANCE: 375 MG/M2 IV Q12 WKS ON 22,34,46,58?2989.25 MG
     Route: 042
     Dates: start: 20140401, end: 20140422
  3. ALBUTEROL [Concomitant]
  4. LEVOTHYROXINE [Concomitant]
  5. MEPRON [Concomitant]
  6. SYMBICORT [Concomitant]
  7. VITAMIN D [Concomitant]
  8. VITAMIN C [Concomitant]
  9. MULTIVITAMINS [Concomitant]

REACTIONS (3)
  - Dysarthria [Recovered/Resolved]
  - VIIth nerve paralysis [Recovered/Resolved]
  - Hypertension [Recovered/Resolved]
